FAERS Safety Report 25734944 (Version 1)
Quarter: 2025Q3

REPORT INFORMATION
  Report Type: Spontaneous
  Country: US (occurrence: US)
  Receive Date: 20250828
  Receipt Date: 20250828
  Transmission Date: 20251021
  Serious: No
  Sender: STRIDES
  Company Number: US-STRIDES ARCOLAB LIMITED-2025SP009745

PATIENT
  Sex: Female

DRUGS (1)
  1. MAGNESIUM\POTASSIUM\SODIUM [Suspect]
     Active Substance: MAGNESIUM\POTASSIUM\SODIUM
     Indication: Colonoscopy
     Route: 048

REACTIONS (2)
  - Retching [Unknown]
  - Abdominal distension [Unknown]
